FAERS Safety Report 17264481 (Version 1)
Quarter: 2020Q1

REPORT INFORMATION
  Report Type: Spontaneous
  Country: US (occurrence: US)
  Receive Date: 20200113
  Receipt Date: 20200113
  Transmission Date: 20200409
  Serious: Yes (Death)
  Sender: FDA-Public Use
  Company Number: US-BAYER-2020-003317

PATIENT
  Age: 82 Year
  Sex: Female

DRUGS (5)
  1. VENLAFAXINE [Suspect]
     Active Substance: VENLAFAXINE HYDROCHLORIDE
  2. ACETYLSALICYLIC ACID [Suspect]
     Active Substance: ASPIRIN
     Route: 048
  3. ALPRAZOLAM. [Suspect]
     Active Substance: ALPRAZOLAM
  4. LEVETIRACETAM. [Suspect]
     Active Substance: LEVETIRACETAM
  5. DOXEPIN [Suspect]
     Active Substance: DOXEPIN

REACTIONS (2)
  - Toxicity to various agents [Fatal]
  - Completed suicide [Fatal]
